FAERS Safety Report 23169741 (Version 1)
Quarter: 2023Q4

REPORT INFORMATION
  Report Type: Spontaneous
  Country: CN (occurrence: CN)
  Receive Date: 20231110
  Receipt Date: 20231110
  Transmission Date: 20240110
  Serious: Yes (Other)
  Sender: FDA-Public Use
  Company Number: CN-MLMSERVICE-20231027-4626821-1

PATIENT
  Age: 12 Year
  Sex: Male

DRUGS (8)
  1. CISPLATIN [Suspect]
     Active Substance: CISPLATIN
     Indication: Germ cell cancer metastatic
     Dosage: ONE COURSE
  2. ETOPOSIDE [Suspect]
     Active Substance: ETOPOSIDE
     Indication: Metastases to lymph nodes
     Dosage: ONE COURSE
  3. ETOPOSIDE [Suspect]
     Active Substance: ETOPOSIDE
     Indication: Germ cell cancer metastatic
     Dosage: ONE COURSE
  4. ETOPOSIDE [Suspect]
     Active Substance: ETOPOSIDE
     Indication: Neoplasm progression
     Dosage: ONE COURSE
  5. ETOPOSIDE [Suspect]
     Active Substance: ETOPOSIDE
     Indication: Metastases to abdominal cavity
     Dosage: ONE COURSE
  6. CISPLATIN [Suspect]
     Active Substance: CISPLATIN
     Indication: Metastases to lymph nodes
     Dosage: ONE COURSE
  7. CISPLATIN [Suspect]
     Active Substance: CISPLATIN
     Indication: Metastases to abdominal cavity
     Dosage: ONE COURSE
  8. CISPLATIN [Suspect]
     Active Substance: CISPLATIN
     Indication: Neoplasm progression
     Dosage: ONE COURSE

REACTIONS (2)
  - Dyspnoea [Unknown]
  - Oxygen saturation decreased [Unknown]
